FAERS Safety Report 17035940 (Version 1)
Quarter: 2019Q4

REPORT INFORMATION
  Report Type: Spontaneous
  Country: US (occurrence: US)
  Receive Date: 20191114
  Receipt Date: 20191114
  Transmission Date: 20200122
  Serious: Yes (Hospitalization)
  Sender: FDA-Public Use
  Company Number: None

PATIENT
  Age: 77 Year
  Weight: 71 kg

DRUGS (5)
  1. AMLODIPINE [Concomitant]
     Active Substance: AMLODIPINE BESYLATE
     Dates: start: 20091101
  2. ATORVASTATIN 40MG [Concomitant]
     Active Substance: ATORVASTATIN
     Dates: start: 20080803
  3. TERBINAFINE. [Suspect]
     Active Substance: TERBINAFINE
  4. METFORMIN 100MG TWICE DAILY [Concomitant]
     Dates: start: 20091101
  5. LISINPRIL 40MG [Concomitant]
     Dates: start: 20091101

REACTIONS (6)
  - Dyspnoea [None]
  - Cardiac failure [None]
  - Weight increased [None]
  - Oedema [None]
  - Fluid overload [None]
  - Hypoxia [None]

NARRATIVE: CASE EVENT DATE: 20191105
